FAERS Safety Report 9842609 (Version 1)
Quarter: 2014Q1

REPORT INFORMATION
  Report Type: Report from Study
  Country: CA (occurrence: CA)
  Receive Date: 20140124
  Receipt Date: 20140124
  Transmission Date: 20141002
  Serious: Yes (Hospitalization)
  Sender: FDA-Public Use
  Company Number: CA-ACTELION-A-US2014-93671

PATIENT
  Age: 51 Year
  Sex: Female
  Weight: 61.22 kg

DRUGS (4)
  1. VELETRI [Suspect]
     Indication: PULMONARY HYPERTENSION
     Dosage: 83 NG/KG, PER MIN
     Route: 041
     Dates: start: 20131210
  2. VIAGRA [Concomitant]
     Dosage: 25 MG, TID
  3. IMODIUM [Concomitant]
     Dosage: 4 MG, UNK
  4. ATARAX [Concomitant]
     Dosage: 50 MG, UNK

REACTIONS (1)
  - Appendicectomy [Recovered/Resolved]
